FAERS Safety Report 15168668 (Version 1)
Quarter: 2018Q3

REPORT INFORMATION
  Report Type: Spontaneous
  Country: DE (occurrence: DE)
  Receive Date: 20180719
  Receipt Date: 20180719
  Transmission Date: 20181010
  Serious: Yes (Hospitalization, Other)
  Sender: FDA-Public Use
  Company Number: DE-TEVA-2018-DE-929112

PATIENT
  Age: 34 Year
  Sex: Female

DRUGS (4)
  1. LETROZOLE. [Suspect]
     Active Substance: LETROZOLE
     Route: 065
  2. OVALEAP [Suspect]
     Active Substance: FOLLITROPIN
     Indication: MANAGEMENT OF REPRODUCTION
     Dosage: 225 IU (INTERNATIONAL UNIT) DAILY;
     Route: 065
  3. TRIPTOFEM [Suspect]
     Active Substance: TRIPTORELIN ACETATE
     Indication: MANAGEMENT OF REPRODUCTION
     Dosage: 2 AMPOULES
     Route: 065
  4. CETROTID [Suspect]
     Active Substance: CETRORELIX ACETATE
     Indication: MANAGEMENT OF REPRODUCTION
     Dosage: .25 MILLIGRAM DAILY;
     Route: 065

REACTIONS (3)
  - Ascites [Recovered/Resolved]
  - Ovarian hyperstimulation syndrome [Recovered/Resolved]
  - Haematocrit increased [Recovered/Resolved]

NARRATIVE: CASE EVENT DATE: 20180615
